FAERS Safety Report 7633399-3 (Version None)
Quarter: 2011Q3

REPORT INFORMATION
  Report Type: 
  Country: None (occurrence: None)
  Receive Date: 20110725
  Receipt Date: 20101220
  Transmission Date: 20111222
  Serious: No
  Sender: FDA-Public Use
  Company Number: US-BRISTOL-MYERS SQUIBB COMPANY-15450760

PATIENT
  Age: 50 Year
  Sex: Male

DRUGS (6)
  1. ZOFRAN [Concomitant]
  2. IBUPROFEN (ADVIL) [Concomitant]
  3. MARINOL [Concomitant]
  4. AMBIEN [Concomitant]
  5. OXYCODONE HCL [Concomitant]
  6. SPRYCEL [Suspect]
     Indication: CHRONIC MYELOID LEUKAEMIA
     Dates: start: 20101201

REACTIONS (1)
  - HEADACHE [None]
